FAERS Safety Report 9113265 (Version 2)
Quarter: 2013Q1

REPORT INFORMATION
  Report Type: Spontaneous
  Country: GB (occurrence: GB)
  Receive Date: 20130211
  Receipt Date: 20130319
  Transmission Date: 20140127
  Serious: Yes (Other)
  Sender: FDA-Public Use
  Company Number: GB-ROCHE-1142966

PATIENT
  Age: 47 Year
  Sex: Female
  Weight: 84 kg

DRUGS (2)
  1. HERCEPTIN [Suspect]
     Indication: BREAST CANCER
     Route: 042
     Dates: start: 20120814
  2. HERCEPTIN [Suspect]
     Route: 042
     Dates: start: 20120816

REACTIONS (21)
  - Breast tenderness [Unknown]
  - Dysgeusia [Not Recovered/Not Resolved]
  - Neuropathy peripheral [Not Recovered/Not Resolved]
  - Onychoclasis [Not Recovered/Not Resolved]
  - Hot flush [Not Recovered/Not Resolved]
  - Restless legs syndrome [Not Recovered/Not Resolved]
  - Asthenia [Not Recovered/Not Resolved]
  - Hypoaesthesia [Unknown]
  - Blood pressure increased [Unknown]
  - Myalgia [Not Recovered/Not Resolved]
  - Myalgia [Not Recovered/Not Resolved]
  - Cough [Unknown]
  - Gingival pain [Unknown]
  - Arthralgia [Unknown]
  - Mouth ulceration [Not Recovered/Not Resolved]
  - Insomnia [Not Recovered/Not Resolved]
  - Neuropathy peripheral [Not Recovered/Not Resolved]
  - Diarrhoea [Recovered/Resolved]
  - Vomiting [Recovered/Resolved]
  - Fatigue [Not Recovered/Not Resolved]
  - Bladder prolapse [Unknown]
